FAERS Safety Report 6161397-8 (Version None)
Quarter: 2009Q2

REPORT INFORMATION
  Report Type: 
  Country: None (occurrence: None)
  Receive Date: 20090421
  Receipt Date: 20090407
  Transmission Date: 20091009
  Serious: Yes (Hospitalization, Other)
  Sender: FDA-Public Use
  Company Number: CA-PURDUE-CAN_2009_0000950

PATIENT
  Age: 62 Year
  Sex: Male
  Weight: 68 kg

DRUGS (10)
  1. UNIPHYL [Suspect]
     Indication: DRUG USE FOR UNKNOWN INDICATION
     Dosage: 400 MG, DAILY
     Route: 048
  2. AVELOX                             /01453201/ [Suspect]
     Indication: DRUG USE FOR UNKNOWN INDICATION
     Dosage: 400 MG, DAILY
     Route: 048
  3. ACTONEL [Concomitant]
     Indication: DRUG USE FOR UNKNOWN INDICATION
     Route: 048
  4. ADVAIR HFA [Concomitant]
     Indication: DRUG USE FOR UNKNOWN INDICATION
     Route: 055
  5. CALCITE 500+D [Concomitant]
     Indication: DRUG USE FOR UNKNOWN INDICATION
     Route: 048
  6. HEPARIN                            /00027704/ [Concomitant]
     Indication: DRUG USE FOR UNKNOWN INDICATION
     Route: 058
  7. IPRATROPIUM BROMIDE [Concomitant]
     Indication: DRUG USE FOR UNKNOWN INDICATION
  8. PREDNISONE                         /00044702/ [Concomitant]
     Indication: DRUG USE FOR UNKNOWN INDICATION
  9. SALBUTAMOL                         /00139502/ [Concomitant]
     Indication: DRUG USE FOR UNKNOWN INDICATION
  10. SOLU-MEDROL [Concomitant]
     Indication: DRUG USE FOR UNKNOWN INDICATION
     Route: 042

REACTIONS (11)
  - ABDOMINAL DISCOMFORT [None]
  - COLITIS [None]
  - COLONOSCOPY ABNORMAL [None]
  - CROHN'S DISEASE [None]
  - DIARRHOEA [None]
  - ENTEROCOLITIS INFECTIOUS [None]
  - FLATULENCE [None]
  - GASTROINTESTINAL PAIN [None]
  - RECTAL HAEMORRHAGE [None]
  - SCAN ABDOMEN ABNORMAL [None]
  - TOXICOLOGIC TEST ABNORMAL [None]
